FAERS Safety Report 9855787 (Version 2)
Quarter: 2014Q1

REPORT INFORMATION
  Report Type: Report from Study
  Country: BE (occurrence: BE)
  Receive Date: 20140130
  Receipt Date: 20140130
  Transmission Date: 20141002
  Serious: Yes (Other)
  Sender: FDA-Public Use
  Company Number: BE-ROCHE-1246526

PATIENT
  Age: 39 Year
  Sex: 0

DRUGS (3)
  1. AVASTIN [Suspect]
     Indication: GLIOBLASTOMA
     Route: 065
     Dates: start: 20120913
  2. AVASTIN [Suspect]
     Route: 065
     Dates: start: 20120927
  3. AVASTIN [Suspect]
     Route: 065
     Dates: start: 20121011

REACTIONS (3)
  - Ischaemic stroke [Recovered/Resolved with Sequelae]
  - Hyponatraemia [Recovered/Resolved]
  - Epistaxis [Recovered/Resolved]
